FAERS Safety Report 14534306 (Version 1)
Quarter: 2018Q1

REPORT INFORMATION
  Report Type: Spontaneous
  Country: US (occurrence: US)
  Receive Date: 20180214
  Receipt Date: 20180214
  Transmission Date: 20180509
  Serious: No
  Sender: FDA-Public Use
  Company Number: None

PATIENT
  Age: 65 Year
  Sex: Female

DRUGS (1)
  1. ENTECAVIR TAB 1MG [Suspect]
     Active Substance: ENTECAVIR

REACTIONS (3)
  - Drug dose omission [None]
  - Product use complaint [None]
  - Headache [None]

NARRATIVE: CASE EVENT DATE: 20180211
